FAERS Safety Report 5773876-3 (Version None)
Quarter: 2008Q2

REPORT INFORMATION
  Report Type: 
  Country: None (occurrence: None)
  Receive Date: 20080616
  Receipt Date: 20080606
  Transmission Date: 20081010
  Serious: Yes (Other)
  Sender: FDA-Public Use
  Company Number: A0728538A

PATIENT
  Age: 44 Year
  Sex: Male
  Weight: 129.5 kg

DRUGS (10)
  1. COREG [Suspect]
     Indication: DRUG USE FOR UNKNOWN INDICATION
     Dosage: 12.5MG UNKNOWN
     Route: 048
  2. ACTOS [Concomitant]
     Dosage: 45MG PER DAY
  3. GLUCOPHAGE [Concomitant]
     Dosage: 850MG PER DAY
  4. GLYBURIDE [Concomitant]
     Dosage: 10MG TWICE PER DAY
  5. FISH OIL [Concomitant]
     Dosage: 1000MG TWICE PER DAY
  6. ASPIRIN [Concomitant]
  7. VYTORIN [Concomitant]
  8. LASIX [Concomitant]
     Dosage: 20MG PER DAY
  9. LANTUS [Concomitant]
     Dosage: 20MG PER DAY
  10. UNKNOWN [Concomitant]
     Dosage: 20MG PER DAY

REACTIONS (3)
  - BLINDNESS [None]
  - HYPOGLYCAEMIA [None]
  - VISUAL DISTURBANCE [None]
